FAERS Safety Report 5100713-2 (Version None)
Quarter: 2006Q3

REPORT INFORMATION
  Report Type: 
  Country: None (occurrence: None)
  Receive Date: 20060731
  Receipt Date: 20060517
  Transmission Date: 20061208
  Serious: No
  Sender: FDA-Public Use
  Company Number: 2006PV014001

PATIENT
  Age: 58 Year
  Sex: Male
  Weight: 119.7496 kg

DRUGS (6)
  1. BYETTA [Suspect]
     Indication: DIABETES MELLITUS NON-INSULIN-DEPENDENT
     Dosage: 5 MCB;BID;SC
     Route: 058
     Dates: start: 20060515
  2. NOVOLOG [Concomitant]
  3. NOVOLIN 70/30 [Concomitant]
  4. AVANDIA [Concomitant]
  5. AVANDAMET [Concomitant]
  6. MEGAVIT [Concomitant]

REACTIONS (2)
  - URTICARIA [None]
  - WEIGHT DECREASED [None]
